FAERS Safety Report 7171156-5 (Version None)
Quarter: 2010Q4

REPORT INFORMATION
  Report Type: 
  Country: None (occurrence: None)
  Receive Date: 20101217
  Receipt Date: 20101209
  Transmission Date: 20110411
  Serious: Yes (Death, Hospitalization, Other)
  Sender: FDA-Public Use
  Company Number: US-PFIZER INC-2010168975

PATIENT
  Sex: Male
  Weight: 79.38 kg

DRUGS (2)
  1. NEURONTIN [Suspect]
     Indication: CONVULSION
     Dosage: FREQUENCY: 3X/DAY,
  2. DILANTIN-125 [Suspect]
     Dosage: UNK

REACTIONS (7)
  - ASTHENIA [None]
  - COMA [None]
  - DYSPNOEA [None]
  - EYE ROLLING [None]
  - PNEUMONIA [None]
  - SEPSIS [None]
  - TREMOR [None]
